FAERS Safety Report 9493220 (Version 1)
Quarter: 2013Q3

REPORT INFORMATION
  Report Type: Spontaneous
  Country: US (occurrence: US)
  Receive Date: 20130902
  Receipt Date: 20130902
  Transmission Date: 20140515
  Serious: Yes (Other)
  Sender: FDA-Public Use
  Company Number: PHEH2013US018146

PATIENT
  Sex: Female

DRUGS (6)
  1. NEORAL [Suspect]
     Indication: HEART TRANSPLANT
  2. NORVASC [Concomitant]
  3. AZATHIOPRINE [Concomitant]
  4. CALCITRIOL [Concomitant]
  5. OMEGA 3 [Concomitant]
  6. DAILY MULTIVITAMIN [Concomitant]

REACTIONS (2)
  - Renal disorder [Unknown]
  - Lung disorder [Unknown]
